FAERS Safety Report 7622908-6 (Version None)
Quarter: 2011Q3

REPORT INFORMATION
  Report Type: 
  Country: None (occurrence: None)
  Receive Date: 20110720
  Receipt Date: 20110706
  Transmission Date: 20111222
  Serious: Yes (Other)
  Sender: FDA-Public Use
  Company Number: US-BAYER-2011-050950

PATIENT
  Age: 37 Year
  Sex: Female
  Weight: 58.957 kg

DRUGS (14)
  1. YASMIN [Suspect]
     Indication: CONTRACEPTION
     Dosage: UNK
     Dates: start: 20040601, end: 20050401
  2. YAZ [Suspect]
     Indication: CONTRACEPTION
     Dosage: UNK
     Dates: start: 20081201, end: 20110315
  3. YAZ [Suspect]
     Dosage: UNK
     Dates: start: 19970101, end: 19990101
  4. YAZ [Suspect]
     Dosage: UNK
     Dates: start: 20030101, end: 20110101
  5. ALEVE (CAPLET) [Concomitant]
     Route: 048
  6. YASMIN [Suspect]
     Dosage: UNK
     Dates: start: 20010101, end: 20020101
  7. DROSPIRENONE AND ETHINYL ESTRADIOL [Suspect]
     Indication: CONTRACEPTION
     Dosage: UNK
     Dates: start: 20080701, end: 20081101
  8. LEXAPRO [Concomitant]
     Indication: AFFECTIVE DISORDER
     Dosage: 0.5 MG, UNK
     Route: 048
  9. NASONEX [Concomitant]
     Indication: SEASONAL ALLERGY
     Dosage: UNK
  10. YAZ [Suspect]
     Dosage: UNK
     Dates: start: 20010101, end: 20020101
  11. MUCINEX [Concomitant]
     Dosage: 600 MG, PRN
  12. YASMIN [Suspect]
     Dosage: UNK
     Dates: start: 20030101, end: 20110101
  13. YASMIN [Suspect]
     Dosage: UNK
     Dates: start: 19970101, end: 19990101
  14. DROSPIRENONE AND ETHINYL ESTRADIOL [Suspect]
     Dosage: UNK
     Dates: start: 20030101, end: 20110101

REACTIONS (1)
  - DEEP VEIN THROMBOSIS [None]
